FAERS Safety Report 9692602 (Version 1)
Quarter: 2013Q4

REPORT INFORMATION
  Report Type: Report from Study
  Country: TW (occurrence: TW)
  Receive Date: 20131118
  Receipt Date: 20131118
  Transmission Date: 20140711
  Serious: No
  Sender: FDA-Public Use
  Company Number: PHHY2013TW129636

PATIENT
  Age: 24 Year
  Sex: Male

DRUGS (23)
  1. AMN107 [Suspect]
     Dates: start: 20110630, end: 20120821
  2. AMN107 [Suspect]
     Dosage: UNK
     Dates: start: 20120822, end: 20120918
  3. AMN107 [Suspect]
     Dosage: UNK
     Dates: start: 20120919, end: 20121204
  4. AMN107 [Suspect]
     Dosage: UNK
     Dates: start: 20121209
  5. BENTYL [Concomitant]
     Indication: ABDOMINAL PAIN
     Dates: start: 20120919, end: 20120921
  6. CATAFLAM [Concomitant]
     Indication: BONE PAIN
     Dates: start: 20120209, end: 20120213
  7. CATAFLAM [Concomitant]
     Indication: DYSURIA
     Dosage: UNK
     Dates: start: 20120331, end: 20120407
  8. DENOSIN [Concomitant]
     Indication: UPPER RESPIRATORY TRACT INFECTION
     Dates: start: 20121016, end: 20121019
  9. DEXALTIN [Concomitant]
     Indication: MOUTH ULCERATION
     Dates: start: 20120502, end: 20120516
  10. DEXALTIN [Concomitant]
     Dosage: UNK
     Dates: start: 20120530, end: 20120613
  11. DOXYCYCLINE [Concomitant]
     Indication: ECZEMA
     Dates: start: 20130624, end: 20130708
  12. DOXYCYCLINE [Concomitant]
     Indication: FOLLICULITIS
  13. FAMOTIDINE [Concomitant]
     Indication: UPPER RESPIRATORY TRACT INFECTION
     Dates: start: 20121016, end: 20121019
  14. LOPERAMIDE [Concomitant]
     Indication: IRRITABLE BOWEL SYNDROME
     Dates: start: 20110602, end: 20110615
  15. MEDICONE [Concomitant]
     Indication: UPPER RESPIRATORY TRACT INFECTION
     Dates: start: 20121016, end: 20121019
  16. MEFENAMIC [Concomitant]
     Indication: UPPER RESPIRATORY TRACT INFECTION
     Dates: start: 20121016, end: 20121019
  17. MELOXICAM [Concomitant]
     Indication: UPPER RESPIRATORY TRACT INFECTION
     Dates: start: 20121016, end: 20121019
  18. MUCAINE [Concomitant]
     Indication: ABDOMINAL PAIN
     Dates: start: 20120919, end: 20120921
  19. SECORIN [Concomitant]
     Indication: ANXIETY
     Dates: start: 20120209, end: 20120213
  20. THIAMPHENICOL [Concomitant]
     Indication: DYSURIA
     Dates: start: 20120331, end: 20120407
  21. TRICODEX [Concomitant]
     Indication: ECZEMA
     Dates: start: 20130624, end: 20130708
  22. TRICODEX [Concomitant]
     Indication: FOLLICULITIS
  23. URSODEOXYCHOLIC ACID [Concomitant]
     Indication: HYPERBILIRUBINAEMIA
     Dates: start: 20120822, end: 20120905

REACTIONS (1)
  - Tracheitis [Unknown]
